FAERS Safety Report 20429033 (Version 1)
Quarter: 2022Q1

REPORT INFORMATION
  Report Type: Spontaneous
  Country: US (occurrence: US)
  Receive Date: 20220204
  Receipt Date: 20220204
  Transmission Date: 20220423
  Serious: Yes (Other)
  Sender: FDA-Public Use
  Company Number: US-SUN PHARMACEUTICAL INDUSTRIES LTD-2022R1-324985

PATIENT
  Age: 66 Year
  Sex: Male

DRUGS (11)
  1. CLONIDINE [Suspect]
     Active Substance: CLONIDINE
     Indication: Drug use disorder
     Dosage: 19 TABLET, AT BEDTIME
     Route: 048
  2. METHADONE [Suspect]
     Active Substance: METHADONE HYDROCHLORIDE
     Indication: Drug use disorder
     Dosage: 170 MILLIGRAM, DAILY
     Route: 065
  3. CLONIDINE [Concomitant]
     Active Substance: CLONIDINE
     Indication: Drug use disorder
     Dosage: 1 PATCH, WEEKLY(EVERY 7 DAY)
     Route: 065
  4. SERTRALINE [Concomitant]
     Active Substance: SERTRALINE HYDROCHLORIDE
     Indication: Drug use disorder
     Dosage: 50 MILLIGRAM, DAILY
     Route: 065
  5. DIVALPROEX SODIUM [Concomitant]
     Active Substance: DIVALPROEX SODIUM
     Indication: Drug use disorder
     Dosage: 1000 MILLIGRAM, AT BEDTIME
     Route: 065
  6. PROPRANOLOL [Concomitant]
     Active Substance: PROPRANOLOL HYDROCHLORIDE
     Indication: Drug use disorder
     Dosage: 40 MILLIGRAM, DAILY
     Route: 065
  7. FERROUS GLUCONATE [Concomitant]
     Active Substance: FERROUS GLUCONATE
     Indication: Drug use disorder
     Dosage: 324 MILLIGRAM, TID
     Route: 065
  8. SENNOSIDES [Concomitant]
     Active Substance: SENNOSIDES
     Indication: Drug use disorder
     Dosage: 8.6 MILLIGRAM, DAILY
     Route: 065
  9. FINASTERIDE [Concomitant]
     Active Substance: FINASTERIDE
     Indication: Drug use disorder
     Dosage: 10 MILLIGRAM, DAILY
     Route: 065
  10. ERGOCALCIFEROL [Concomitant]
     Active Substance: ERGOCALCIFEROL
     Indication: Drug use disorder
     Dosage: 50000 UNIT, WEEKLY
     Route: 065
  11. SODIUM BICARBONATE [Concomitant]
     Active Substance: SODIUM BICARBONATE
     Indication: Drug use disorder
     Dosage: 650 MILLIGRAM, BID
     Route: 065

REACTIONS (4)
  - Drug abuse [Unknown]
  - Obsessive-compulsive disorder [Unknown]
  - Hypotension [Unknown]
  - Hypokalaemia [Unknown]
